FAERS Safety Report 4422233-0 (Version None)
Quarter: 2004Q3

REPORT INFORMATION
  Report Type: 
  Country: None (occurrence: None)
  Receive Date: 20040810
  Receipt Date: 20040728
  Transmission Date: 20050211
  Serious: Yes (Life-Threatening, Other)
  Sender: FDA-Public Use
  Company Number: US-AMGEN-US085175

PATIENT
  Sex: Female
  Weight: 112.6 kg

DRUGS (5)
  1. ENBREL [Suspect]
     Indication: RHEUMATOID ARTHRITIS
     Route: 058
     Dates: start: 20021017, end: 20040630
  2. METHOTREXATE [Suspect]
     Route: 058
     Dates: start: 20000901, end: 20040630
  3. VIOXX [Concomitant]
     Dates: start: 20000601
  4. ATENOLOL [Concomitant]
     Dates: start: 20040301
  5. ASPIRIN [Concomitant]
     Dates: start: 20040301, end: 20040630

REACTIONS (1)
  - WOUND DEHISCENCE [None]
